FAERS Safety Report 7087316-8 (Version None)
Quarter: 2010Q4

REPORT INFORMATION
  Report Type: 
  Country: None (occurrence: None)
  Receive Date: 20101108
  Receipt Date: 20101028
  Transmission Date: 20110411
  Serious: Yes (Hospitalization)
  Sender: FDA-Public Use
  Company Number: US-ELI_LILLY_AND_COMPANY-US201010007064

PATIENT
  Sex: Female
  Weight: 41.72 kg

DRUGS (6)
  1. CETUXIMAB [Suspect]
     Indication: NON-SMALL CELL LUNG CANCER
     Dosage: 380 MG, UNK
     Dates: start: 20101012, end: 20101019
  2. GEMCITABINE HCL [Suspect]
     Indication: NON-SMALL CELL LUNG CANCER
     Dosage: 1140 MG, UNK
     Dates: start: 20101012, end: 20101019
  3. CARBOPLATIN [Suspect]
     Indication: NON-SMALL CELL LUNG CANCER
     Dosage: 454 MG, UNK
     Dates: start: 20101012, end: 20101012
  4. COUMADIN [Concomitant]
     Indication: PROPHYLAXIS
     Dosage: 2.5 MG, DAILY (1/D)
     Route: 048
     Dates: start: 20100825
  5. PROTONIX [Concomitant]
     Indication: GASTROOESOPHAGEAL REFLUX DISEASE
     Dosage: UNK, DAILY (1/D)
     Route: 048
     Dates: start: 20101001
  6. MEGACE [Concomitant]
     Indication: INCREASED APPETITE
     Dosage: UNK, DAILY (1/D)
     Route: 048
     Dates: start: 20101001

REACTIONS (6)
  - DECREASED APPETITE [None]
  - DEHYDRATION [None]
  - DYSPHAGIA [None]
  - FATIGUE [None]
  - INFECTION [None]
  - PANCYTOPENIA [None]
